FAERS Safety Report 8012002-7 (Version None)
Quarter: 2011Q4

REPORT INFORMATION
  Report Type: 
  Country: None (occurrence: None)
  Receive Date: 20111228
  Receipt Date: 20111114
  Transmission Date: 20120403
  Serious: Yes (Other)
  Sender: FDA-Public Use
  Company Number: JP-GLAXOSMITHKLINE-B0763440A

PATIENT
  Age: 75 Year
  Sex: Female

DRUGS (2)
  1. ZOVIRAX [Suspect]
     Indication: HERPES ZOSTER
     Route: 048
     Dates: start: 20110801
  2. ZOVIRAX [Suspect]
     Route: 042

REACTIONS (4)
  - BLOOD CREATININE INCREASED [None]
  - CRYSTAL NEPHROPATHY [None]
  - RENAL DISORDER [None]
  - PAIN [None]
